FAERS Safety Report 23397747 (Version 4)
Quarter: 2025Q3

REPORT INFORMATION
  Report Type: Spontaneous
  Country: EU (occurrence: EU)
  Receive Date: 20240112
  Receipt Date: 20250704
  Transmission Date: 20251020
  Serious: Yes (Hospitalization)
  Sender: SANDOZ
  Company Number: EU-GILEAD-2022-0591627

PATIENT
  Age: 61 Year
  Sex: Male
  Weight: 111 kg

DRUGS (147)
  1. CYCLOPHOSPHAMIDE [Suspect]
     Active Substance: CYCLOPHOSPHAMIDE
     Indication: Mantle cell lymphoma
     Route: 065
     Dates: end: 20220825
  2. CYCLOPHOSPHAMIDE [Suspect]
     Active Substance: CYCLOPHOSPHAMIDE
     Route: 065
     Dates: end: 20220826
  3. CYCLOPHOSPHAMIDE [Suspect]
     Active Substance: CYCLOPHOSPHAMIDE
     Route: 065
     Dates: end: 20220827
  4. CYTARABINE [Suspect]
     Active Substance: CYTARABINE
     Indication: Mantle cell lymphoma
     Route: 065
     Dates: start: 20220729, end: 20220730
  5. FLUDARABINE [Suspect]
     Active Substance: FLUDARABINE PHOSPHATE
     Indication: Mantle cell lymphoma
     Route: 065
     Dates: end: 20220825
  6. FLUDARABINE [Suspect]
     Active Substance: FLUDARABINE PHOSPHATE
     Route: 065
     Dates: end: 20220826
  7. FLUDARABINE [Suspect]
     Active Substance: FLUDARABINE PHOSPHATE
     Route: 065
     Dates: end: 20220827
  8. MESNA [Suspect]
     Active Substance: MESNA
     Indication: Mantle cell lymphoma
     Route: 065
     Dates: start: 20220827, end: 20220827
  9. MESNA [Suspect]
     Active Substance: MESNA
     Route: 065
     Dates: start: 20220825, end: 20220825
  10. MESNA [Suspect]
     Active Substance: MESNA
     Route: 065
     Dates: start: 20220826, end: 20220826
  11. MESNA [Suspect]
     Active Substance: MESNA
     Route: 065
     Dates: start: 20220828, end: 20220828
  12. FOLIC ACID [Concomitant]
     Active Substance: FOLIC ACID
     Indication: Product used for unknown indication
     Route: 048
     Dates: start: 20220729, end: 20220823
  13. ACYCLOVIR [Concomitant]
     Active Substance: ACYCLOVIR
     Route: 048
     Dates: start: 20220825, end: 20220904
  14. ACYCLOVIR [Concomitant]
     Active Substance: ACYCLOVIR
     Indication: Product used for unknown indication
     Route: 048
     Dates: start: 20220905, end: 20221024
  15. ASPIRIN [Concomitant]
     Active Substance: ASPIRIN
     Route: 048
     Dates: start: 20220824, end: 20220830
  16. ASPIRIN [Concomitant]
     Active Substance: ASPIRIN
     Route: 048
     Dates: start: 2013, end: 20220728
  17. ASPIRIN [Concomitant]
     Active Substance: ASPIRIN
     Route: 048
     Dates: start: 2013
  18. ASPIRIN [Concomitant]
     Active Substance: ASPIRIN
     Indication: Product used for unknown indication
     Route: 048
     Dates: start: 20220806, end: 20220806
  19. ASPIRIN [Concomitant]
     Active Substance: ASPIRIN
     Route: 048
     Dates: start: 20220801, end: 20220801
  20. Albumine humaine 20% biotest [Concomitant]
     Route: 042
     Dates: start: 20220830, end: 20220902
  21. Albumine humaine 20% biotest [Concomitant]
     Indication: Product used for unknown indication
     Route: 042
     Dates: start: 20220825, end: 20220829
  22. Albumine humaine 20% biotest [Concomitant]
     Route: 042
     Dates: start: 20220913, end: 20220921
  23. Albumine humaine 20% biotest [Concomitant]
     Indication: Product used for unknown indication
     Route: 042
     Dates: start: 20220728, end: 20220731
  24. Albumine humaine 20% biotest [Concomitant]
     Route: 042
     Dates: start: 20220912, end: 20220912
  25. Albumine humaine 20% biotest [Concomitant]
     Route: 042
     Dates: start: 20220830, end: 20220902
  26. Albumine humaine 20% biotest [Concomitant]
     Route: 042
     Dates: start: 20220825, end: 20220829
  27. Albumine humaine 20% biotest [Concomitant]
     Route: 042
     Dates: start: 20220913, end: 20220921
  28. ALDACTONE [Concomitant]
     Active Substance: SPIRONOLACTONE
     Route: 048
     Dates: start: 20220812, end: 20220823
  29. ALDACTONE [Concomitant]
     Active Substance: SPIRONOLACTONE
     Route: 048
     Dates: start: 20220827, end: 20220902
  30. ALDACTONE [Concomitant]
     Active Substance: SPIRONOLACTONE
     Route: 048
     Dates: end: 20220728
  31. ALDACTONE [Concomitant]
     Active Substance: SPIRONOLACTONE
     Route: 048
     Dates: start: 20220810, end: 20220811
  32. ALDACTONE [Concomitant]
     Active Substance: SPIRONOLACTONE
     Indication: Product used for unknown indication
     Route: 048
     Dates: start: 20220806, end: 20220806
  33. ALDACTONE [Concomitant]
     Active Substance: SPIRONOLACTONE
     Route: 048
     Dates: start: 20220802, end: 20220802
  34. ALDACTONE [Concomitant]
     Active Substance: SPIRONOLACTONE
     Route: 042
     Dates: start: 20220801, end: 20220801
  35. ALLOPURINOL [Concomitant]
     Active Substance: ALLOPURINOL
     Route: 048
     Dates: start: 20220824, end: 20220824
  36. ALLOPURINOL [Concomitant]
     Active Substance: ALLOPURINOL
     Indication: Product used for unknown indication
     Route: 048
  37. ALLOPURINOL [Concomitant]
     Active Substance: ALLOPURINOL
     Route: 048
     Dates: start: 20220810, end: 20220823
  38. ALLOPURINOL [Concomitant]
     Active Substance: ALLOPURINOL
     Route: 048
     Dates: start: 20220820, end: 20221017
  39. ALLOPURINOL [Concomitant]
     Active Substance: ALLOPURINOL
     Route: 048
     Dates: end: 20220728
  40. ALLOPURINOL [Concomitant]
     Active Substance: ALLOPURINOL
     Route: 048
  41. ALLOPURINOL [Concomitant]
     Active Substance: ALLOPURINOL
     Route: 048
     Dates: start: 20220801, end: 20220801
  42. ALLOPURINOL [Concomitant]
     Active Substance: ALLOPURINOL
     Route: 048
     Dates: start: 20220806, end: 20220806
  43. ALLOPURINOL [Concomitant]
     Active Substance: ALLOPURINOL
     Route: 048
     Dates: start: 20220808, end: 20220808
  44. Aloclair plus [Concomitant]
     Indication: Product used for unknown indication
     Route: 050
     Dates: start: 20220825, end: 20220923
  45. ATORVASTATIN [Concomitant]
     Active Substance: ATORVASTATIN
     Indication: Product used for unknown indication
     Route: 048
  46. BEMIPARIN [Concomitant]
     Active Substance: BEMIPARIN
     Indication: Product used for unknown indication
     Route: 058
     Dates: start: 20220729, end: 20220806
  47. BEMIPARIN [Concomitant]
     Active Substance: BEMIPARIN
     Route: 058
     Dates: start: 20220823, end: 20220901
  48. BISOPROLOL [Concomitant]
     Active Substance: BISOPROLOL
     Indication: Product used for unknown indication
     Dosage: 2.5,MG,DAILY
     Route: 048
  49. BISOPROLOL [Concomitant]
     Active Substance: BISOPROLOL
     Dosage: 2.5,MG,DAILY
     Route: 048
     Dates: start: 20221023
  50. BISOPROLOL [Concomitant]
     Active Substance: BISOPROLOL
     Dosage: 2.5,MG,DAILY
     Route: 048
  51. CALCIUM [Concomitant]
     Active Substance: CALCIUM
     Indication: Product used for unknown indication
     Route: 042
     Dates: start: 20220628, end: 20220628
  52. Calcium spofa [Concomitant]
     Indication: Product used for unknown indication
     Route: 042
     Dates: start: 20220826, end: 20220827
  53. Clorhexidina [Concomitant]
     Indication: Product used for unknown indication
     Route: 050
     Dates: start: 20220825, end: 20221024
  54. De magnesia [Concomitant]
     Indication: Product used for unknown indication
     Route: 048
     Dates: start: 20220827, end: 20220828
  55. BISOPROLOL FUMARATE [Concomitant]
     Active Substance: BISOPROLOL FUMARATE
     Indication: Product used for unknown indication
     Route: 048
     Dates: end: 20221023
  56. BISOPROLOL FUMARATE [Concomitant]
     Active Substance: BISOPROLOL FUMARATE
     Route: 048
     Dates: end: 20221023
  57. BISOPROLOL FUMARATE [Concomitant]
     Active Substance: BISOPROLOL FUMARATE
     Route: 048
     Dates: end: 20221023
  58. DEXAMETHASONE [Concomitant]
     Active Substance: DEXAMETHASONE
     Route: 050
     Dates: start: 20220729, end: 20220730
  59. DEXAMETHASONE [Concomitant]
     Active Substance: DEXAMETHASONE
     Route: 042
     Dates: start: 20220918, end: 20220919
  60. DEXAMETHASONE [Concomitant]
     Active Substance: DEXAMETHASONE
     Route: 042
     Dates: start: 20220922, end: 20220922
  61. DEXAMETHASONE [Concomitant]
     Active Substance: DEXAMETHASONE
     Route: 042
     Dates: start: 20220920, end: 20220920
  62. DEXAMETHASONE [Concomitant]
     Active Substance: DEXAMETHASONE
     Route: 042
     Dates: start: 20220921, end: 20220921
  63. DEXAMETHASONE [Concomitant]
     Active Substance: DEXAMETHASONE
     Indication: Product used for unknown indication
     Route: 048
     Dates: start: 20220701, end: 20220707
  64. ENALAPRIL [Concomitant]
     Active Substance: ENALAPRIL
     Indication: Product used for unknown indication
     Route: 048
     Dates: end: 20220728
  65. ENALAPRIL [Concomitant]
     Active Substance: ENALAPRIL
     Route: 048
  66. ENALAPRIL [Concomitant]
     Active Substance: ENALAPRIL
     Route: 048
  67. EVUSHELD [Concomitant]
     Active Substance: CILGAVIMAB\TIXAGEVIMAB
     Indication: Product used for unknown indication
     Route: 030
     Dates: start: 202207, end: 202207
  68. FASTURTEC [Concomitant]
     Active Substance: RASBURICASE
     Indication: Product used for unknown indication
     Route: 042
     Dates: start: 20220825, end: 20220828
  69. FASTURTEC [Concomitant]
     Active Substance: RASBURICASE
     Route: 042
     Dates: start: 20220729, end: 20220730
  70. FUROSEMIDE [Concomitant]
     Active Substance: FUROSEMIDE
     Route: 042
     Dates: start: 20220825, end: 20220913
  71. FUROSEMIDE [Concomitant]
     Active Substance: FUROSEMIDE
     Route: 048
     Dates: start: 20220801, end: 20220802
  72. FUROSEMIDE [Concomitant]
     Active Substance: FUROSEMIDE
     Route: 042
     Dates: start: 20220830, end: 20220830
  73. FUROSEMIDE [Concomitant]
     Active Substance: FUROSEMIDE
     Route: 042
     Dates: start: 20220905, end: 20220905
  74. FUROSEMIDE [Concomitant]
     Active Substance: FUROSEMIDE
     Route: 042
     Dates: start: 20220914, end: 20220914
  75. FUROSEMIDE [Concomitant]
     Active Substance: FUROSEMIDE
     Route: 042
     Dates: start: 20220920, end: 20220920
  76. FUROSEMIDE [Concomitant]
     Active Substance: FUROSEMIDE
     Route: 048
     Dates: start: 20220728, end: 20220728
  77. FUROSEMIDE [Concomitant]
     Active Substance: FUROSEMIDE
     Route: 042
     Dates: start: 20220914, end: 20221008
  78. FUROSEMIDE [Concomitant]
     Active Substance: FUROSEMIDE
     Indication: Product used for unknown indication
     Route: 042
     Dates: start: 20220729, end: 20220731
  79. FUROSEMIDE [Concomitant]
     Active Substance: FUROSEMIDE
     Route: 048
     Dates: start: 202207, end: 20220728
  80. FUROSEMIDE [Concomitant]
     Active Substance: FUROSEMIDE
     Route: 042
     Dates: start: 20220813, end: 20220828
  81. FUROSEMIDE [Concomitant]
     Active Substance: FUROSEMIDE
     Route: 042
     Dates: start: 20220829, end: 20220830
  82. FUROSEMIDE [Concomitant]
     Active Substance: FUROSEMIDE
     Route: 048
     Dates: start: 20220801, end: 20220812
  83. DEXTROSE [Concomitant]
     Active Substance: DEXTROSE MONOHYDRATE
     Indication: Product used for unknown indication
     Route: 042
     Dates: start: 20220825, end: 20220828
  84. Irradiated platelet concentrate-leukocytes reduced [Concomitant]
     Route: 042
     Dates: start: 20220808, end: 20220808
  85. Irradiated platelet concentrate-leukocytes reduced [Concomitant]
     Route: 042
     Dates: start: 20220809, end: 20220809
  86. Irradiated platelet concentrate-leukocytes reduced [Concomitant]
     Route: 042
     Dates: start: 20220810, end: 20220810
  87. Irradiated platelet concentrate-leukocytes reduced [Concomitant]
     Route: 042
     Dates: start: 20220812, end: 20220812
  88. Irradiated platelet concentrate-leukocytes reduced [Concomitant]
     Route: 042
     Dates: start: 20220905, end: 20220905
  89. Irradiated platelet concentrate-leukocytes reduced [Concomitant]
     Route: 042
     Dates: start: 20220912, end: 20220912
  90. Irradiated platelet concentrate-leukocytes reduced [Concomitant]
     Route: 042
     Dates: start: 20220913, end: 20220913
  91. Irradiated platelet concentrate-leukocytes reduced [Concomitant]
     Route: 042
     Dates: start: 20220914, end: 20220914
  92. Irradiated platelet concentrate-leukocytes reduced [Concomitant]
     Route: 042
     Dates: start: 20220915, end: 20220915
  93. Irradiated platelet concentrate-leukocytes reduced [Concomitant]
     Route: 042
     Dates: start: 20220916, end: 20220916
  94. Irradiated platelet concentrate-leukocytes reduced [Concomitant]
     Route: 042
     Dates: start: 20220917, end: 20220917
  95. Irradiated platelet concentrate-leukocytes reduced [Concomitant]
     Route: 042
     Dates: start: 20220919, end: 20220919
  96. Irradiated platelet concentrate-leukocytes reduced [Concomitant]
     Route: 042
     Dates: start: 20220920, end: 20220920
  97. Irradiated platelet concentrate-leukocytes reduced [Concomitant]
     Route: 042
     Dates: start: 20220921, end: 20220921
  98. Irradiated platelet concentrate-leukocytes reduced [Concomitant]
     Route: 042
     Dates: start: 20220922, end: 20220922
  99. Irradiated platelet concentrate-leukocytes reduced [Concomitant]
     Indication: Product used for unknown indication
     Route: 042
     Dates: start: 20220918, end: 20220918
  100. LACTULOSE [Concomitant]
     Active Substance: LACTULOSE
     Route: 048
     Dates: start: 202207, end: 20220812
  101. LACTULOSE [Concomitant]
     Active Substance: LACTULOSE
     Route: 048
     Dates: start: 20220915, end: 20220915
  102. LACTULOSE [Concomitant]
     Active Substance: LACTULOSE
     Indication: Product used for unknown indication
     Route: 048
     Dates: start: 20220909, end: 20220914
  103. LACTULOSE [Concomitant]
     Active Substance: LACTULOSE
     Route: 048
     Dates: start: 20220813, end: 20220823
  104. MAGNESIUM SULFATE [Concomitant]
     Active Substance: MAGNESIUM SULFATE
     Indication: Product used for unknown indication
     Route: 042
     Dates: start: 20220827, end: 20220828
  105. MAGNESIUM SULFATE [Concomitant]
     Active Substance: MAGNESIUM SULFATE
     Route: 042
     Dates: start: 20220829, end: 20220830
  106. MAGNESIUM SULFATE [Concomitant]
     Active Substance: MAGNESIUM SULFATE
     Route: 042
     Dates: start: 20220916, end: 20220920
  107. MAGNESIUM SULFATE [Concomitant]
     Active Substance: MAGNESIUM SULFATE
     Route: 042
     Dates: start: 20220826, end: 20220826
  108. MAGNESIUM SULFATE [Concomitant]
     Active Substance: MAGNESIUM SULFATE
     Route: 042
     Dates: start: 20220915, end: 20220915
  109. Metoclopramida Kern Pharma [Concomitant]
     Indication: Product used for unknown indication
     Route: 042
     Dates: start: 20220918, end: 20220919
  110. Metoclopramida Kern Pharma [Concomitant]
     Route: 042
     Dates: start: 20220915, end: 20220915
  111. Metoclopramida Kern Pharma [Concomitant]
     Route: 042
     Dates: start: 20220729, end: 20220730
  112. MYCOSTATIN [Concomitant]
     Active Substance: NYSTATIN
     Indication: Product used for unknown indication
     Route: 050
     Dates: start: 20220825, end: 20221024
  113. NITROGLYCERIN [Concomitant]
     Active Substance: NITROGLYCERIN
     Indication: Product used for unknown indication
     Route: 048
     Dates: start: 2013
  114. OMEPRAZOLE [Concomitant]
     Active Substance: OMEPRAZOLE
     Indication: Product used for unknown indication
     Route: 048
  115. Omnilax [Concomitant]
     Indication: Product used for unknown indication
     Route: 048
     Dates: start: 20220824, end: 20220828
  116. Ondansetron Ips [Concomitant]
     Indication: Product used for unknown indication
     Route: 042
     Dates: start: 20220730, end: 20220730
  117. Ondansetron Ips [Concomitant]
     Route: 042
     Dates: start: 20220825, end: 20220828
  118. ACETAMINOPHEN [Concomitant]
     Active Substance: ACETAMINOPHEN
     Route: 042
     Dates: start: 20220825, end: 20220827
  119. ACETAMINOPHEN [Concomitant]
     Active Substance: ACETAMINOPHEN
     Route: 048
     Dates: start: 20220909, end: 20220909
  120. ACETAMINOPHEN [Concomitant]
     Active Substance: ACETAMINOPHEN
     Indication: Product used for unknown indication
     Route: 042
     Dates: start: 20220810, end: 20220810
  121. ACETAMINOPHEN [Concomitant]
     Active Substance: ACETAMINOPHEN
     Route: 042
     Dates: start: 20220915, end: 20220915
  122. Parafinemulsjon naf [Concomitant]
     Indication: Product used for unknown indication
     Route: 048
     Dates: start: 20220901, end: 20220915
  123. SODIUM CHLORIDE [Concomitant]
     Active Substance: SODIUM CHLORIDE
     Route: 042
     Dates: start: 20220729, end: 20220731
  124. SODIUM CHLORIDE [Concomitant]
     Active Substance: SODIUM CHLORIDE
     Route: 042
     Dates: start: 20220801, end: 20220801
  125. SODIUM CHLORIDE [Concomitant]
     Active Substance: SODIUM CHLORIDE
     Indication: Product used for unknown indication
     Route: 042
     Dates: start: 20220810, end: 20220811
  126. PIPERACILLIN AND TAZOBACTAM [Concomitant]
     Active Substance: PIPERACILLIN SODIUM\TAZOBACTAM SODIUM
     Indication: Product used for unknown indication
     Route: 042
     Dates: start: 20220827, end: 20220828
  127. Porekal [Concomitant]
     Indication: Product used for unknown indication
     Route: 048
     Dates: start: 20220811, end: 20220823
  128. Porekal [Concomitant]
     Route: 042
     Dates: start: 20220811, end: 20220811
  129. CANRENOATE POTASSIUM [Concomitant]
     Active Substance: CANRENOATE POTASSIUM
     Indication: Product used for unknown indication
     Dosage: 10 MG, QD
     Route: 042
     Dates: start: 20220810, end: 20220810
  130. HUMAN RED BLOOD CELL [Concomitant]
     Active Substance: HUMAN RED BLOOD CELL
     Indication: Product used for unknown indication
     Route: 042
     Dates: start: 20220922, end: 20220922
  131. HUMAN RED BLOOD CELL [Concomitant]
     Active Substance: HUMAN RED BLOOD CELL
     Route: 042
     Dates: start: 20220831, end: 20220831
  132. HUMAN RED BLOOD CELL [Concomitant]
     Active Substance: HUMAN RED BLOOD CELL
     Route: 042
     Dates: start: 20220911, end: 20220911
  133. HUMAN RED BLOOD CELL [Concomitant]
     Active Substance: HUMAN RED BLOOD CELL
     Route: 042
     Dates: start: 20220912, end: 20220912
  134. HUMAN RED BLOOD CELL [Concomitant]
     Active Substance: HUMAN RED BLOOD CELL
     Route: 042
     Dates: start: 20220914, end: 20220914
  135. HUMAN RED BLOOD CELL [Concomitant]
     Active Substance: HUMAN RED BLOOD CELL
     Route: 042
     Dates: start: 20220916, end: 20220916
  136. HUMAN RED BLOOD CELL [Concomitant]
     Active Substance: HUMAN RED BLOOD CELL
     Route: 042
     Dates: start: 20220920, end: 20220920
  137. HUMAN RED BLOOD CELL [Concomitant]
     Active Substance: HUMAN RED BLOOD CELL
     Route: 042
     Dates: start: 20220921, end: 20220921
  138. HUMAN RED BLOOD CELL [Concomitant]
     Active Substance: HUMAN RED BLOOD CELL
     Route: 042
     Dates: start: 20220830, end: 20220830
  139. HUMAN RED BLOOD CELL [Concomitant]
     Active Substance: HUMAN RED BLOOD CELL
     Route: 042
     Dates: start: 20220905, end: 20220905
  140. LEVOFLOXACIN [Concomitant]
     Active Substance: LEVOFLOXACIN
     Route: 048
     Dates: start: 20220811, end: 20220816
  141. LEVOFLOXACIN [Concomitant]
     Active Substance: LEVOFLOXACIN
     Route: 048
     Dates: start: 20220905, end: 20220906
  142. LEVOFLOXACIN [Concomitant]
     Active Substance: LEVOFLOXACIN
     Indication: Product used for unknown indication
     Route: 048
     Dates: start: 20220909, end: 20220909
  143. PIPERACILLIN SODIUM\TAZOBACTAM SODIUM [Concomitant]
     Active Substance: PIPERACILLIN SODIUM\TAZOBACTAM SODIUM
     Indication: Product used for unknown indication
     Route: 042
     Dates: start: 20220810, end: 20220811
  144. SULFAMETHOXAZOLE\TRIMETHOPRIM [Concomitant]
     Active Substance: SULFAMETHOXAZOLE\TRIMETHOPRIM
     Indication: Product used for unknown indication
     Route: 048
     Dates: start: 20220825, end: 20220830
  145. Trivalen [Concomitant]
     Indication: Product used for unknown indication
     Route: 042
     Dates: start: 20220825, end: 20220827
  146. URSODIOL [Concomitant]
     Active Substance: URSODIOL
     Indication: Product used for unknown indication
     Route: 048
     Dates: start: 20220728, end: 20221024
  147. VITAMIN K [Concomitant]
     Active Substance: PHYTONADIONE
     Indication: Product used for unknown indication
     Route: 042
     Dates: start: 20220810, end: 20220810

REACTIONS (2)
  - Hepatic cirrhosis [Recovered/Resolved]
  - Renal impairment [Recovered/Resolved]

NARRATIVE: CASE EVENT DATE: 20220728
